FAERS Safety Report 9895678 (Version 1)
Quarter: 2014Q1

REPORT INFORMATION
  Report Type: Spontaneous
  Country: US (occurrence: US)
  Receive Date: 20140213
  Receipt Date: 20140213
  Transmission Date: 20141002
  Serious: No
  Sender: FDA-Public Use
  Company Number: US-BRISTOL-MYERS SQUIBB COMPANY-18749002

PATIENT
  Age: 54 Year
  Sex: Female
  Weight: 68.03 kg

DRUGS (3)
  1. ABATACEPT SUBQ INJECTION 125MG/ML [Suspect]
     Indication: RHEUMATOID ARTHRITIS
     Route: 058
  2. CALCIUM [Concomitant]
     Dosage: 1DF: 500 TAB
  3. MULTIVITAMIN [Concomitant]
     Dosage: CAPS

REACTIONS (1)
  - Injection site reaction [Unknown]
